FAERS Safety Report 7615819-3 (Version None)
Quarter: 2011Q3

REPORT INFORMATION
  Report Type: 
  Country: None (occurrence: None)
  Receive Date: 20110711
  Receipt Date: 20110624
  Transmission Date: 20111222
  Serious: Yes (Hospitalization, Other)
  Sender: FDA-Public Use
  Company Number: 2011MA008035

PATIENT
  Age: 69 Year
  Sex: Female

DRUGS (1)
  1. PHENYTOIN [Suspect]

REACTIONS (20)
  - COUGH [None]
  - FATIGUE [None]
  - ANAEMIA [None]
  - TRACHEITIS [None]
  - DERMATITIS EXFOLIATIVE [None]
  - THROMBOCYTOPENIA [None]
  - STRIDOR [None]
  - HYPOTENSION [None]
  - HYPOXIA [None]
  - DRUG RASH WITH EOSINOPHILIA AND SYSTEMIC SYMPTOMS [None]
  - PYREXIA [None]
  - DYSPNOEA [None]
  - WHEEZING [None]
  - BRONCHIAL SECRETION RETENTION [None]
  - TOXICITY TO VARIOUS AGENTS [None]
  - HEPATITIS ACUTE [None]
  - ASTHENIA [None]
  - LYMPHADENOPATHY [None]
  - ELECTROCARDIOGRAM ST SEGMENT DEPRESSION [None]
  - CARDIAC ENZYMES INCREASED [None]
